FAERS Safety Report 6743252-5 (Version None)
Quarter: 2010Q2

REPORT INFORMATION
  Report Type: 
  Country: None (occurrence: None)
  Receive Date: 20100527
  Receipt Date: 20100519
  Transmission Date: 20101027
  Serious: Yes (Hospitalization)
  Sender: FDA-Public Use
  Company Number: SZ-ASTRAZENECA-2010SE23182

PATIENT
  Age: 84 Year
  Sex: Female
  Weight: 50 kg

DRUGS (9)
  1. ATACAND [Suspect]
     Indication: BLOOD PRESSURE INCREASED
     Route: 048
     Dates: start: 20090304, end: 20090306
  2. CIPROXIN [Suspect]
     Indication: CYSTITIS
     Route: 048
     Dates: start: 20090302, end: 20090309
  3. COMILORID [Concomitant]
     Route: 048
     Dates: end: 20090303
  4. MEPHANOL [Concomitant]
     Route: 048
  5. SIFROL [Concomitant]
     Dosage: 0.25 MG, 2.5 PER 1 DAY
     Route: 048
  6. MADOPAR [Concomitant]
     Dosage: 250 MG, 2.5 PER 1
     Route: 048
  7. CALCIMAGON-D 3 [Concomitant]
     Route: 048
  8. TRANSIPEG [Concomitant]
     Route: 048
  9. LIQUAEMIN INJ [Concomitant]
     Route: 058

REACTIONS (1)
  - RENAL FAILURE CHRONIC [None]
